FAERS Safety Report 20892505 (Version 1)
Quarter: 2022Q2

REPORT INFORMATION
  Report Type: Spontaneous
  Country: IR (occurrence: IR)
  Receive Date: 20220531
  Receipt Date: 20220531
  Transmission Date: 20220721
  Serious: Yes (Hospitalization, Other)
  Sender: FDA-Public Use
  Company Number: IR-SUN PHARMACEUTICAL INDUSTRIES LTD-2022R1-338255

PATIENT
  Sex: Male
  Weight: 2.494 kg

DRUGS (1)
  1. DIGOXIN [Suspect]
     Active Substance: DIGOXIN
     Indication: Arrhythmia
     Dosage: 250 MICROGRAM, TID (MAINTENANCE DOSE)
     Route: 064

REACTIONS (3)
  - Drug ineffective [Unknown]
  - Premature baby [Unknown]
  - Foetal exposure during pregnancy [Unknown]
